FAERS Safety Report 9702699 (Version 3)
Quarter: 2014Q2

REPORT INFORMATION
  Report Type: Report from Study
  Country: CA (occurrence: CA)
  Receive Date: 20131121
  Receipt Date: 20140403
  Transmission Date: 20141212
  Serious: Yes (Hospitalization, Other)
  Sender: FDA-Public Use
  Company Number: CA-ABBVIE-13P-028-1169429-00

PATIENT
  Sex: Female
  Weight: 63.56 kg

DRUGS (10)
  1. HUMIRA [Suspect]
     Indication: CROHN^S DISEASE
     Dosage: LATEST INJECTION: 06 NOV 2013
     Route: 058
     Dates: start: 20101006, end: 201311
  2. HUMIRA [Suspect]
     Dosage: INDUCTION DOSE
     Route: 058
     Dates: start: 20140212, end: 20140212
  3. HUMIRA [Suspect]
     Route: 058
  4. PREDNISONE [Suspect]
     Indication: CROHN^S DISEASE
     Dosage: HIGHER DOSAGE
     Route: 048
     Dates: start: 2012
  5. PREDNISONE [Suspect]
     Route: 048
     Dates: start: 2013
  6. RAMIPRIL [Concomitant]
     Indication: HYPERTENSION
     Route: 048
  7. OMEPRAZOLE [Concomitant]
     Indication: GASTROOESOPHAGEAL REFLUX DISEASE
     Route: 048
  8. METFORMIN [Concomitant]
     Indication: DIABETES MELLITUS
     Route: 048
  9. LIPITOR [Concomitant]
     Indication: BLOOD CHOLESTEROL INCREASED
     Route: 048
  10. PAXIL [Concomitant]
     Indication: ANXIETY
     Route: 048

REACTIONS (12)
  - Gastrointestinal inflammation [Recovering/Resolving]
  - Condition aggravated [Not Recovered/Not Resolved]
  - Crohn^s disease [Not Recovered/Not Resolved]
  - Crohn^s disease [Not Recovered/Not Resolved]
  - Blood glucose increased [Recovered/Resolved]
  - Pain [Not Recovered/Not Resolved]
  - Frequent bowel movements [Not Recovered/Not Resolved]
  - Faeces hard [Not Recovered/Not Resolved]
  - Arthropathy [Unknown]
  - Arthritis [Unknown]
  - Drug ineffective [Unknown]
  - Abdominal pain upper [Recovered/Resolved]
